FAERS Safety Report 20057348 (Version 1)
Quarter: 2021Q4

REPORT INFORMATION
  Report Type: Spontaneous
  Country: US (occurrence: None)
  Receive Date: 20211110
  Receipt Date: 20211110
  Transmission Date: 20220303
  Serious: Yes (Other)
  Sender: FDA-Public Use
  Company Number: None

PATIENT
  Age: 44 Year
  Sex: Female

DRUGS (4)
  1. KYLEENA [Suspect]
     Active Substance: LEVONORGESTREL
     Indication: Contraception
     Dosage: OTHER QUANTITY : 1 1 DEVICE;?OTHER ROUTE : INTRAUTERINE;?
     Route: 050
     Dates: start: 20201007, end: 20211108
  2. SPIRONOLACTONE [Concomitant]
     Active Substance: SPIRONOLACTONE
  3. NAPROXEN [Concomitant]
     Active Substance: NAPROXEN
  4. ACETAMINOPHEN [Concomitant]
     Active Substance: ACETAMINOPHEN

REACTIONS (2)
  - Endometriosis [None]
  - Pain [None]

NARRATIVE: CASE EVENT DATE: 20201007
